FAERS Safety Report 7527889-1 (Version None)
Quarter: 2011Q2

REPORT INFORMATION
  Report Type: 
  Country: None (occurrence: None)
  Receive Date: 20110607
  Receipt Date: 20110601
  Transmission Date: 20111010
  Serious: No
  Sender: FDA-Public Use
  Company Number: US-PFIZER INC-2011040284

PATIENT
  Sex: Male
  Weight: 90.7 kg

DRUGS (3)
  1. INSULIN [Concomitant]
     Indication: DIABETES MELLITUS
     Dosage: UNK
  2. LIPITOR [Suspect]
     Indication: DIABETES MELLITUS
     Dosage: UNK
     Route: 048
  3. LIPITOR [Suspect]
     Indication: BLOOD CHOLESTEROL INCREASED

REACTIONS (4)
  - BLOOD CHOLESTEROL INCREASED [None]
  - RASH [None]
  - LOW DENSITY LIPOPROTEIN INCREASED [None]
  - EXPIRED DRUG ADMINISTERED [None]
